FAERS Safety Report 21765875 (Version 1)
Quarter: 2022Q4

REPORT INFORMATION
  Report Type: Spontaneous
  Country: SE (occurrence: None)
  Receive Date: 20221222
  Receipt Date: 20221222
  Transmission Date: 20230113
  Serious: Yes (Hospitalization)
  Sender: FDA-Public Use
  Company Number: 2022A406112

PATIENT
  Age: 24 Year
  Sex: Female

DRUGS (3)
  1. QUETIAPINE [Suspect]
     Active Substance: QUETIAPINE
     Dosage: ^9 ST QUETIAPIN, OKLAR STYRKA OCH OM DEPOT ELLER VANLIGA^ ONCE/SINGLE ADMINISTRATION
     Route: 065
     Dates: start: 20210720, end: 20210720
  2. IMOVANE [Suspect]
     Active Substance: ZOPICLONE
     Dosage: 25.0MG ONCE/SINGLE ADMINISTRATION
     Route: 048
     Dates: start: 20210720
  3. LISDEXAMFETAMINE DIMESYLATE [Suspect]
     Active Substance: LISDEXAMFETAMINE DIMESYLATE
     Dosage: 420.0MG ONCE/SINGLE ADMINISTRATION
     Route: 048
     Dates: start: 20210720, end: 20210720

REACTIONS (2)
  - Intentional overdose [Unknown]
  - Intentional self-injury [Unknown]

NARRATIVE: CASE EVENT DATE: 20210720
